FAERS Safety Report 19750886 (Version 3)
Quarter: 2021Q4

REPORT INFORMATION
  Report Type: Report from Study
  Country: FR (occurrence: FR)
  Receive Date: 20210826
  Receipt Date: 20211206
  Transmission Date: 20220303
  Serious: Yes (Hospitalization)
  Sender: FDA-Public Use
  Company Number: FR-JNJFOC-20210838549

PATIENT
  Age: 54 Year
  Sex: Male

DRUGS (8)
  1. SPRAVATO [Suspect]
     Active Substance: ESKETAMINE
     Indication: Depression
     Dosage: 56 MG, 16 TOTAL DOSES
     Dates: start: 20200504, end: 20200819
  2. SPRAVATO [Suspect]
     Active Substance: ESKETAMINE
     Dosage: 84 MG, 17 TOTAL DOSES
     Dates: start: 20200904, end: 20201204
  3. SPRAVATO [Suspect]
     Active Substance: ESKETAMINE
     Dosage: 56 MG, 1 TOTAL DOSE
     Dates: start: 20201207, end: 20201207
  4. SPRAVATO [Suspect]
     Active Substance: ESKETAMINE
     Dosage: 28 MG, 10 TOTAL DOSES
     Dates: start: 20201211, end: 20210201
  5. SPRAVATO [Suspect]
     Active Substance: ESKETAMINE
     Dosage: 56 MG, 9 TOTAL DOSES
     Dates: start: 20210208, end: 20210421
  6. SPRAVATO [Suspect]
     Active Substance: ESKETAMINE
     Dosage: 84 MG, 1 TOTAL DOSE
     Dates: start: 20210428, end: 20210428
  7. SPRAVATO [Suspect]
     Active Substance: ESKETAMINE
     Dosage: 56 MG, 6 TOTAL DOSES
     Dates: start: 20210505, end: 20210521
  8. SPRAVATO [Suspect]
     Active Substance: ESKETAMINE
     Dosage: 84 MG, 6 TOTAL DOSES
     Dates: start: 20210528

REACTIONS (1)
  - Treatment failure [Recovered/Resolved]

NARRATIVE: CASE EVENT DATE: 20200701
